FAERS Safety Report 11182770 (Version 4)
Quarter: 2015Q3

REPORT INFORMATION
  Report Type: Spontaneous
  Country: US (occurrence: US)
  Receive Date: 20150611
  Receipt Date: 20150915
  Transmission Date: 20151125
  Serious: No
  Sender: FDA-Public Use
  Company Number: US-GILEAD-2015-0157094

PATIENT
  Age: 61 Year
  Sex: Female
  Weight: 165 kg

DRUGS (8)
  1. VAGIFEM [Concomitant]
     Active Substance: ESTRADIOL
     Indication: POSTMENOPAUSE
     Dosage: 25 MG, UNK
     Route: 067
     Dates: start: 20090610
  2. VITAMIN D3 [Concomitant]
     Active Substance: CHOLECALCIFEROL
     Indication: HYPOVITAMINOSIS
     Dosage: UNK
     Dates: start: 20090610
  3. HARVONI [Suspect]
     Active Substance: LEDIPASVIR\SOFOSBUVIR
     Indication: HEPATITIS C
     Dosage: 1 UNK, UNK
     Route: 065
     Dates: start: 20150113, end: 20150406
  4. PROGESTERONE. [Concomitant]
     Active Substance: PROGESTERONE
     Indication: POSTMENOPAUSE
     Dosage: UNK
     Route: 048
     Dates: start: 20131202
  5. PROBIOTICS NOS [Concomitant]
     Active Substance: PROBIOTICS NOS
     Indication: PROPHYLAXIS
     Dosage: UNK
     Dates: start: 20090610
  6. ASPIRIN                            /00002701/ [Concomitant]
     Active Substance: ASPIRIN
     Indication: CARDIOVASCULAR EVENT PROPHYLAXIS
     Dosage: 325 MG, UNK
     Route: 048
     Dates: start: 20090610
  7. KLONOPIN [Concomitant]
     Active Substance: CLONAZEPAM
     Indication: ANXIETY
     Dosage: 0.5 MG, PRN
  8. IBUPROFEN. [Concomitant]
     Active Substance: IBUPROFEN
     Indication: PAIN
     Dosage: 200 MG, PRN
     Route: 048
     Dates: start: 20100413

REACTIONS (2)
  - Neuropathy peripheral [Not Recovered/Not Resolved]
  - Fall [Unknown]

NARRATIVE: CASE EVENT DATE: 20150413
